FAERS Safety Report 6981926-1 (Version None)
Quarter: 2010Q3

REPORT INFORMATION
  Report Type: 
  Country: None (occurrence: None)
  Receive Date: 20100914
  Receipt Date: 20091019
  Transmission Date: 20110219
  Serious: No
  Sender: FDA-Public Use
  Company Number: US-PFIZER INC-2009286566

PATIENT
  Sex: Female
  Weight: 70.3 kg

DRUGS (5)
  1. LYRICA [Suspect]
     Indication: NEURALGIA
     Dosage: 75 MG, 1X/DAY
     Route: 048
     Dates: start: 20090601
  2. OGEN [Concomitant]
     Indication: HORMONE REPLACEMENT THERAPY
     Dosage: 1.25 MG, 1X/DAY
     Route: 048
  3. LEVSIN [Concomitant]
     Indication: IRRITABLE BOWEL SYNDROME
     Dosage: 0.125 MG, 1X/DAY
     Route: 048
  4. CLARITIN [Concomitant]
     Indication: HYPERSENSITIVITY
     Dosage: UNK
  5. NASONEX [Concomitant]
     Indication: HYPERSENSITIVITY
     Dosage: UNK

REACTIONS (2)
  - ALOPECIA [None]
  - NAIL DISORDER [None]
